FAERS Safety Report 16909560 (Version 2)
Quarter: 2019Q4

REPORT INFORMATION
  Report Type: Spontaneous
  Country: JP (occurrence: JP)
  Receive Date: 20191011
  Receipt Date: 20191016
  Transmission Date: 20200122
  Serious: Yes (Death, Hospitalization, Other)
  Sender: FDA-Public Use
  Company Number: JP-ASTRAZENECA-2019SF44689

PATIENT
  Age: 79 Year
  Sex: Male
  Weight: 59 kg

DRUGS (12)
  1. LANSOPRAZOLE OD [Concomitant]
     Active Substance: LANSOPRAZOLE
     Route: 048
     Dates: start: 20190731
  2. IMFINZI [Suspect]
     Active Substance: DURVALUMAB
     Indication: NON-SMALL CELL LUNG CANCER
     Route: 041
     Dates: start: 20190910, end: 20190910
  3. ALLOID G [Concomitant]
     Active Substance: SODIUM ALGINATE
     Route: 048
     Dates: start: 20190826
  4. NITRAZEPAM [Concomitant]
     Active Substance: NITRAZEPAM
     Dosage: DOSE UNKNOWN
     Route: 065
  5. MAGNESIUM OXIDE. [Concomitant]
     Active Substance: MAGNESIUM OXIDE
     Dosage: DOSE UNKNOWN
     Route: 048
  6. SPIRONOLACTONE. [Concomitant]
     Active Substance: SPIRONOLACTONE
     Dosage: DOSE UNKNOWN
     Route: 048
     Dates: start: 20190919
  7. VESICARE [Concomitant]
     Active Substance: SOLIFENACIN SUCCINATE
     Dosage: DOSE UNKNOWN
     Route: 048
  8. URIEF OD [Concomitant]
     Dosage: DOSE UNKNOWN
     Route: 048
  9. TULOBUTEROL [Concomitant]
     Active Substance: TULOBUTEROL
     Route: 065
     Dates: start: 20190914
  10. FUROSEMIDE. [Concomitant]
     Active Substance: FUROSEMIDE
     Dosage: DOSE UNKNOWN
     Route: 048
  11. PICOSULFATE NA [Concomitant]
     Active Substance: SODIUM PICOSULFATE
     Route: 065
     Dates: start: 20190718
  12. ASVERIN (TIPEPIDINE HIBENZATE) [Concomitant]
     Active Substance: TIPEPIDINE HIBENZATE
     Dosage: DOSE UNKNOWN
     Route: 048
     Dates: start: 20190910

REACTIONS (4)
  - Lung opacity [Unknown]
  - Acute respiratory failure [Fatal]
  - Interstitial lung disease [Fatal]
  - Pyrexia [Recovering/Resolving]

NARRATIVE: CASE EVENT DATE: 201909
